FAERS Safety Report 20957752 (Version 1)
Quarter: 2022Q2

REPORT INFORMATION
  Report Type: Report from Study
  Country: CO (occurrence: CO)
  Receive Date: 20220614
  Receipt Date: 20220614
  Transmission Date: 20220721
  Serious: Yes (Death, Hospitalization, Other)
  Sender: FDA-Public Use
  Company Number: CO-ELI_LILLY_AND_COMPANY-CO202206005720

PATIENT
  Age: 68 Year
  Sex: Male

DRUGS (1)
  1. FORTEO [Suspect]
     Active Substance: TERIPARATIDE
     Indication: Osteoporosis
     Dosage: 20 UG, DAILY
     Route: 058
     Dates: start: 20201124, end: 202201

REACTIONS (5)
  - Death [Fatal]
  - Pneumonia bacterial [Unknown]
  - Appendicitis [Unknown]
  - Acquired haemophilia [Unknown]
  - Renal failure [Unknown]

NARRATIVE: CASE EVENT DATE: 20211201
